FAERS Safety Report 9989385 (Version 3)
Quarter: 2014Q3

REPORT INFORMATION
  Report Type: Spontaneous
  Country: FR (occurrence: FR)
  Receive Date: 20140310
  Receipt Date: 20140711
  Transmission Date: 20150326
  Serious: Yes (Hospitalization, Other)
  Sender: FDA-Public Use
  Company Number: FR-PFIZER INC-2014064124

PATIENT
  Age: 58 Year
  Sex: Female

DRUGS (6)
  1. TEGRETOL [Concomitant]
     Active Substance: CARBAMAZEPINE
     Dosage: 2 TABLETS OF 200 MG, 2X/DAY IN THE MORNING AND IN THE EVENING
     Route: 048
  2. VALIUM [Concomitant]
     Active Substance: DIAZEPAM
     Dosage: 5 MG, 3X/DAY IN THE MORNING AT NOON AND IN THE EVENING
     Route: 048
  3. TERALITHE [Interacting]
     Active Substance: LITHIUM CARBONATE
     Dosage: 250 MG, 4X/DAY
     Route: 048
     Dates: end: 20131008
  4. NORFLOXACIN [Concomitant]
     Active Substance: NORFLOXACIN
     Indication: URINARY TRACT INFECTION
     Dosage: UNK
     Route: 048
     Dates: start: 20131004, end: 20131008
  5. DEPAKINE [Concomitant]
     Active Substance: VALPROATE SODIUM
     Dosage: 500 MG, 1X/DAY IN THE EVENING
     Route: 048
  6. CELEBREX [Suspect]
     Active Substance: CELECOXIB
     Dosage: 200 MG, 2X/DAY
     Route: 048
     Dates: start: 20131001, end: 20131008

REACTIONS (8)
  - Depressed level of consciousness [Recovered/Resolved]
  - Atrioventricular block complete [Recovered/Resolved]
  - Antipsychotic drug level increased [Recovered/Resolved]
  - Bradycardia [Recovered/Resolved]
  - Erysipelas [Unknown]
  - Drug interaction [Recovered/Resolved]
  - Sluggishness [Unknown]
  - Somnolence [Recovered/Resolved]

NARRATIVE: CASE EVENT DATE: 201307
